FAERS Safety Report 9364863 (Version 7)
Quarter: 2016Q2

REPORT INFORMATION
  Report Type: Spontaneous
  Country: US (occurrence: US)
  Receive Date: 20130624
  Receipt Date: 20160607
  Transmission Date: 20160815
  Serious: Yes (Hospitalization, Other)
  Sender: FDA-Public Use
  Company Number: US-GLAXOSMITHKLINE-A1027855A

PATIENT
  Sex: Female

DRUGS (10)
  1. FLOLAN [Suspect]
     Active Substance: EPOPROSTENOL SODIUM
     Dosage: UNK
  2. FLOLAN [Suspect]
     Active Substance: EPOPROSTENOL SODIUM
     Dosage: 29 NG/KG/MIN, 45,000 NG/ML, 80 ML/DAY, 1.5 MG
  3. FLOLAN [Suspect]
     Active Substance: EPOPROSTENOL SODIUM
     Dosage: 29 NG/KG/MIN, CO, 45,000 NG/ML CONCENTRATION, 80 ML/DAY, 1.5 MG VIAL STRENGTH
     Route: 042
  4. FLOLAN [Suspect]
     Active Substance: EPOPROSTENOL SODIUM
     Indication: PULMONARY HYPERTENSION
     Dosage: 29.07 NG/KG/MINCONCENTRATION: 45000 NG/MLVIAL STRENGTH: 1.5 MG
     Route: 042
     Dates: start: 20010514
  5. FLOLAN [Suspect]
     Active Substance: EPOPROSTENOL SODIUM
     Dosage: 29 NG/KG/MIN CO
  6. WARFARIN [Concomitant]
     Active Substance: WARFARIN
     Indication: PRODUCT USED FOR UNKNOWN INDICATION
     Dosage: UNK
  7. FLOLAN [Suspect]
     Active Substance: EPOPROSTENOL SODIUM
     Dosage: 29 NG/KG/MIN CONTINUOUS;  45,000 NG/ML CONCENTRATION; 80 ML/DAY PUMP RATE; 1.5 MG VIAL STRENGTH
     Route: 042
  8. REVATIO [Concomitant]
     Active Substance: SILDENAFIL CITRATE
     Indication: PRODUCT USED FOR UNKNOWN INDICATION
     Dosage: UNK
  9. FLOLAN [Suspect]
     Active Substance: EPOPROSTENOL SODIUM
     Dosage: UNK
  10. FLOLAN [Suspect]
     Active Substance: EPOPROSTENOL SODIUM
     Dosage: 29 NG/KG/MIN, CO,CONCENTRATION OF 45,000 NG/ML, PUMP RATE 80 ML/DAY AND 1.5 MG VIAL STRENGTH

REACTIONS (10)
  - Dermatitis contact [Unknown]
  - Peripheral swelling [Unknown]
  - Infusion site pain [Unknown]
  - Pneumonia [Unknown]
  - Complication associated with device [Not Recovered/Not Resolved]
  - Fungal infection [Unknown]
  - Multiple allergies [Unknown]
  - Hospitalisation [Unknown]
  - Incorrect product storage [Unknown]
  - Catheter site erythema [Not Recovered/Not Resolved]
